FAERS Safety Report 5206818-X (Version None)
Quarter: 2006Q4

REPORT INFORMATION
  Report Type: 
  Country: None (occurrence: None)
  Receive Date: 20061031
  Receipt Date: 20060720
  Transmission Date: 20070319
  Serious: Yes (Hospitalization)
  Sender: FDA-Public Use
  Company Number: US017965

PATIENT
  Age: 35 Year
  Sex: Female
  Weight: 70.3075 kg

DRUGS (2)
  1. PROVIGIL [Suspect]
     Indication: NARCOLEPSY
     Dosage: 400 MG BID ORAL
     Route: 048
     Dates: start: 19990401, end: 20000101
  2. PROVIGIL [Suspect]
     Indication: NARCOLEPSY
     Dosage: 400 MG BID ORAL
     Route: 048
     Dates: start: 20050701, end: 20050701

REACTIONS (4)
  - CONFUSIONAL STATE [None]
  - DRUG INEFFECTIVE [None]
  - FATIGUE [None]
  - ROAD TRAFFIC ACCIDENT [None]
